FAERS Safety Report 6717465-2 (Version None)
Quarter: 2010Q2

REPORT INFORMATION
  Report Type: 
  Country: None (occurrence: None)
  Receive Date: 20100510
  Receipt Date: 20100430
  Transmission Date: 20101027
  Serious: Yes (Other)
  Sender: FDA-Public Use
  Company Number: CA-ROCHE-700978

PATIENT
  Sex: Male

DRUGS (4)
  1. BEVACIZUMAB [Suspect]
     Indication: GLIOBLASTOMA MULTIFORME
     Route: 042
     Dates: start: 20091125
  2. DECADRON [Concomitant]
  3. PANTOPRAZOLE [Concomitant]
  4. POTASSIUM [Concomitant]

REACTIONS (4)
  - BALANCE DISORDER [None]
  - FACIAL PARESIS [None]
  - SPEECH DISORDER [None]
  - WOUND INFECTION [None]
